FAERS Safety Report 21434181 (Version 1)
Quarter: 2022Q4

REPORT INFORMATION
  Report Type: Spontaneous
  Country: FR (occurrence: FR)
  Receive Date: 20221010
  Receipt Date: 20221010
  Transmission Date: 20230113
  Serious: Yes (Hospitalization)
  Sender: FDA-Public Use
  Company Number: None

PATIENT
  Age: 25 Year
  Sex: Male

DRUGS (5)
  1. CLONAZEPAM [Suspect]
     Active Substance: CLONAZEPAM
  2. LYRICA [Suspect]
     Active Substance: PREGABALIN
  3. TRAMADOL HYDROCHLORIDE [Suspect]
     Active Substance: TRAMADOL HYDROCHLORIDE
  4. COCAINE [Suspect]
     Active Substance: COCAINE
  5. LIDOCAINE [Suspect]
     Active Substance: LIDOCAINE

REACTIONS (3)
  - Coma [Recovered/Resolved]
  - Hypopnoea [Recovered/Resolved]
  - Intentional product misuse [Not Recovered/Not Resolved]
